FAERS Safety Report 6341184-8 (Version None)
Quarter: 2009Q3

REPORT INFORMATION
  Report Type: 
  Country: None (occurrence: None)
  Receive Date: 20090904
  Receipt Date: 20090402
  Transmission Date: 20100115
  Serious: No
  Sender: FDA-Public Use
  Company Number: A0776868A

PATIENT
  Age: 63 Year
  Sex: Female

DRUGS (4)
  1. REQUIP [Suspect]
     Indication: PARKINSON'S DISEASE
     Route: 048
  2. REQUIP XL [Suspect]
     Indication: PARKINSON'S DISEASE
     Dosage: 8MG PER DAY
     Route: 048
     Dates: start: 20090301
  3. ADEPRIL [Concomitant]
  4. SINEMET [Concomitant]

REACTIONS (4)
  - FATIGUE [None]
  - GAIT DISTURBANCE [None]
  - SLUGGISHNESS [None]
  - TREMOR [None]
